FAERS Safety Report 21797422 (Version 3)
Quarter: 2023Q1

REPORT INFORMATION
  Report Type: Spontaneous
  Country: US (occurrence: US)
  Receive Date: 20221230
  Receipt Date: 20230127
  Transmission Date: 20230417
  Serious: Yes (Other)
  Sender: FDA-Public Use
  Company Number: US-JNJFOC-20221252125

PATIENT
  Sex: Female
  Weight: 62 kg

DRUGS (2)
  1. STELARA [Suspect]
     Active Substance: USTEKINUMAB
     Indication: Crohn^s disease
     Route: 058
  2. STELARA [Suspect]
     Active Substance: USTEKINUMAB
     Indication: Irritable bowel syndrome

REACTIONS (7)
  - Crohn^s disease [Unknown]
  - Needle issue [Unknown]
  - Skin disorder [Unknown]
  - Illness [Unknown]
  - Product dose omission issue [Unknown]
  - Syringe issue [Unknown]
  - Accidental exposure to product [Unknown]
